FAERS Safety Report 13989720 (Version 2)
Quarter: 2017Q3

REPORT INFORMATION
  Report Type: Spontaneous
  Country: JP (occurrence: JP)
  Receive Date: 20170920
  Receipt Date: 20170922
  Transmission Date: 20171128
  Serious: Yes (Other)
  Sender: FDA-Public Use
  Company Number: JP-ROCHE-1995911

PATIENT
  Age: 65 Year
  Sex: Male

DRUGS (3)
  1. CISPLATIN. [Concomitant]
     Active Substance: CISPLATIN
     Indication: LUNG ADENOCARCINOMA
     Dosage: FOUR CYCLE?DOSAGE IS UNCERTAIN.
     Route: 041
     Dates: end: 201611
  2. PEMETREXED SODIUM HYDRATE [Concomitant]
     Active Substance: PEMETREXED
     Indication: LUNG ADENOCARCINOMA
     Dosage: FOUR CYCLE?DOSAGE IS UNCERTAIN.
     Route: 041
     Dates: end: 201611
  3. AVASTIN [Suspect]
     Active Substance: BEVACIZUMAB
     Indication: LUNG ADENOCARCINOMA
     Dosage: FOUR CYCLE?DOSAGE IS UNCERTAIN.
     Route: 041
     Dates: end: 201611

REACTIONS (1)
  - Bone marrow failure [Unknown]
